FAERS Safety Report 4625301-3 (Version None)
Quarter: 2005Q2

REPORT INFORMATION
  Report Type: 
  Country: None (occurrence: None)
  Receive Date: 20050401
  Receipt Date: 20050324
  Transmission Date: 20051028
  Serious: Yes (Other)
  Sender: FDA-Public Use
  Company Number: PHNR2005AU00685

PATIENT
  Sex: Male

DRUGS (2)
  1. ZOMETA [Suspect]
     Dosage: UNK, QMO
     Dates: start: 20040801, end: 20041201
  2. ZOLADEX [Suspect]
     Indication: PROSTATE CANCER

REACTIONS (6)
  - EYE PRURITUS [None]
  - HYPERSENSITIVITY [None]
  - LUNG DISORDER [None]
  - MUSCLE SPASMS [None]
  - PRURITUS [None]
  - WHEEZING [None]
